FAERS Safety Report 6765446-5 (Version None)
Quarter: 2010Q2

REPORT INFORMATION
  Report Type: 
  Country: None (occurrence: None)
  Receive Date: 20100611
  Receipt Date: 20100604
  Transmission Date: 20101027
  Serious: Yes (Death)
  Sender: FDA-Public Use
  Company Number: US-RB-010834-10

PATIENT
  Age: 19 Year
  Sex: Male

DRUGS (2)
  1. SUBOXONE [Suspect]
     Dosage: 4 MG X 2 DOSES
     Route: 060
     Dates: start: 20100527, end: 20100527
  2. BENZODIAZEPINES [Suspect]
     Indication: DEPENDENCE
     Dosage: UNKNOWN DOSING DETAILS
     Route: 065

REACTIONS (1)
  - DEATH [None]
